FAERS Safety Report 15756693 (Version 1)
Quarter: 2018Q4

REPORT INFORMATION
  Report Type: Report from Study
  Country: None (occurrence: BE)
  Receive Date: 20181224
  Receipt Date: 20181224
  Transmission Date: 20190205
  Serious: Yes (Other)
  Sender: FDA-Public Use
  Company Number: BE-ABBVIE-18S-013-2531178-00

PATIENT
  Sex: Male

DRUGS (15)
  1. ASAFLOW [Concomitant]
     Active Substance: ASPIRIN
     Indication: PRODUCT USED FOR UNKNOWN INDICATION
  2. DUODOPA [Suspect]
     Active Substance: CARBIDOPA\LEVODOPA
     Dosage: DOSES CONTINUOUSLY MONITORED AND ADAPTED
     Route: 050
     Dates: start: 20161014, end: 20181012
  3. DUODOPA [Suspect]
     Active Substance: CARBIDOPA\LEVODOPA
     Dosage: MD=4ML?CD=3.5ML/HR DURING 16HRS?ED=1.5ML
     Route: 050
     Dates: start: 20181127
  4. MIRAPEXIN [Concomitant]
     Active Substance: PRAMIPEXOLE
     Indication: PARKINSON^S DISEASE
     Dosage: IN THE MORNING
  5. BELASERE [Concomitant]
     Indication: PRODUCT USED FOR UNKNOWN INDICATION
  6. DUODOPA [Suspect]
     Active Substance: CARBIDOPA\LEVODOPA
     Indication: PARKINSON^S DISEASE
     Dosage: MD= 9ML;CD= 4ML/HR DURING 16HRS;ED= 1.5ML
     Route: 050
     Dates: start: 20161012, end: 20161014
  7. AZILECT [Concomitant]
     Active Substance: RASAGILINE MESYLATE
     Dosage: IN THE MORNING
  8. PROLOPA [Concomitant]
     Active Substance: BENSERAZIDE\LEVODOPA
     Indication: PRODUCT USED FOR UNKNOWN INDICATION
     Dosage: DISPERSIBLE ON DEMAND
  9. ASPIRIN. [Concomitant]
     Active Substance: ASPIRIN
     Indication: PRODUCT USED FOR UNKNOWN INDICATION
     Dosage: IN THE MORNING
  10. MIRAPEXIN [Concomitant]
     Active Substance: PRAMIPEXOLE
     Dosage: IN THE MORNING
  11. MIRAPEXIN [Concomitant]
     Active Substance: PRAMIPEXOLE
     Dosage: IN THE MORNING
     Route: 048
  12. ASPIRIN. [Concomitant]
     Active Substance: ASPIRIN
     Dosage: UNKNOWN?IN THE MORNING
  13. DUODOPA [Suspect]
     Active Substance: CARBIDOPA\LEVODOPA
     Dosage: MD= 4ML;CD= 3.3ML/HR DURING 16HRS;ED= 1.5ML
     Route: 050
     Dates: start: 20181012, end: 20181127
  14. AZILECT [Concomitant]
     Active Substance: RASAGILINE MESYLATE
     Indication: PRODUCT USED FOR UNKNOWN INDICATION
     Dosage: IN THE MORNING
  15. SERLAIN [Concomitant]
     Active Substance: SERTRALINE HYDROCHLORIDE
     Indication: PRODUCT USED FOR UNKNOWN INDICATION
     Dosage: IN THE MORNING

REACTIONS (9)
  - Induration [Unknown]
  - Urinary tract infection [Unknown]
  - Device issue [Unknown]
  - Bloody discharge [Not Recovered/Not Resolved]
  - Embedded device [Unknown]
  - Gastrointestinal stoma complication [Recovering/Resolving]
  - Pain [Unknown]
  - Stoma site erythema [Recovering/Resolving]
  - Fistula [Not Recovered/Not Resolved]
